FAERS Safety Report 4308684-3 (Version None)
Quarter: 2004Q1

REPORT INFORMATION
  Report Type: 
  Country: None (occurrence: None)
  Receive Date: 20040301
  Receipt Date: 20040301
  Transmission Date: 20041129
  Serious: Yes (Hospitalization)
  Sender: FDA-Public Use
  Company Number: None

PATIENT
  Age: 38 Year
  Sex: Male
  Weight: 83.9154 kg

DRUGS (15)
  1. BEVACIZUMAB [Suspect]
     Indication: COLON CANCER
     Dosage: 10 MG/KG Q2WEEKS
     Dates: start: 20031113, end: 20031211
  2. XELODA [Suspect]
     Indication: COLON CANCER
     Dosage: 1000MG/M2 BID
     Dates: end: 20031216
  3. OXALIPLATIN [Suspect]
     Indication: COLON CANCER
     Dosage: 170 MG
     Dates: start: 20031113, end: 20031211
  4. PROZAC [Concomitant]
  5. PROTONIX [Concomitant]
  6. OXYCONTIN [Concomitant]
  7. COMPAZINE [Concomitant]
  8. M.V.I. [Concomitant]
  9. IMODIUM [Concomitant]
  10. LOMOTIL [Concomitant]
  11. IRON [Concomitant]
  12. COUMADIN [Concomitant]
  13. ZOFRAN [Concomitant]
  14. PERCOCET [Concomitant]
  15. BEVACIZUMAB [Suspect]
     Indication: COLON CANCER
     Dosage: 777 MG
     Dates: start: 20031113, end: 20031211

REACTIONS (2)
  - DEHYDRATION [None]
  - DIARRHOEA [None]
